FAERS Safety Report 24128438 (Version 1)
Quarter: 2024Q3

REPORT INFORMATION
  Report Type: Report from Study
  Country: CN (occurrence: CN)
  Receive Date: 20240723
  Receipt Date: 20240723
  Transmission Date: 20241017
  Serious: Yes (Other)
  Sender: JOHNSON AND JOHNSON
  Company Number: CN-JNJFOC-20240744664

PATIENT

DRUGS (1)
  1. REMICADE [Suspect]
     Active Substance: INFLIXIMAB
     Indication: Crohn^s disease
     Dosage: WEEKS 0, 2 AND 6 TO INDUCE REMISSION, FOLLOWED BY MAINTENANCE TREATMENT AT THE SAME DOSE EVERY 8 WEE
     Route: 041

REACTIONS (5)
  - Intestinal obstruction [Unknown]
  - Pulmonary tuberculosis [Unknown]
  - Psoriasis [Unknown]
  - Hypersensitivity [Unknown]
  - Oral herpes [Unknown]
